FAERS Safety Report 22250645 (Version 1)
Quarter: 2023Q2

REPORT INFORMATION
  Report Type: Report from Study
  Country: IT (occurrence: IT)
  Receive Date: 20230425
  Receipt Date: 20230425
  Transmission Date: 20230722
  Serious: Yes (Other)
  Sender: FDA-Public Use
  Company Number: None

PATIENT
  Age: 66 Year
  Sex: Female
  Weight: 55 kg

DRUGS (14)
  1. IRINOTECAN HYDROCHLORIDE [Suspect]
     Active Substance: IRINOTECAN HYDROCHLORIDE
     Dosage: 282 MG, EVERY 14 DAYS
     Route: 042
  2. FLUOROURACIL [Suspect]
     Active Substance: FLUOROURACIL
     Indication: Pancreatic carcinoma
     Dosage: FREQ:14 D; 2800 MG, EVERY 14 DAYS
     Route: 042
     Dates: start: 20221129
  3. DEURSIL [Concomitant]
     Active Substance: URSODIOL
     Dosage: FREQ:24 H;450 MG; 1 TABLET/DAY
     Route: 048
  4. NOVORAPID [Concomitant]
     Active Substance: INSULIN ASPART
     Dosage: UNK
  5. GLICLAZIDE [Concomitant]
     Active Substance: GLICLAZIDE
     Dosage: FREQ:24 H; 30 MG; 1 TABLET/DAY
     Route: 048
  6. PERINDOPRIL E AMLODIPINA AUROBINDO [Concomitant]
     Dosage: FREQ:24 H; 4 MG + 5 MG; 1 TABLET/DAY
  7. LANTUS [Concomitant]
     Active Substance: INSULIN GLARGINE
     Dosage: FREQ:24 H; 26 UI/DAY
  8. EZETIMIBE\ROSUVASTATIN ZINC [Concomitant]
     Active Substance: EZETIMIBE\ROSUVASTATIN ZINC
     Dosage: FREQ:24 H; 20 MG+10 MG; 1 TABLET/DAY
     Route: 048
  9. CALCIUM CARBONATE [Concomitant]
     Active Substance: CALCIUM CARBONATE
     Dosage: FREQ:24 H; 1000 MG; 2 TABLET/DAY
  10. ERYTHROPOIETIN [Concomitant]
     Active Substance: ERYTHROPOIETIN
     Dosage: 1 DF, 1 VIAL/WEEK
  11. CHOLECALCIFEROL [Concomitant]
     Active Substance: CHOLECALCIFEROL
     Dosage: 10000 UI/ML, 40 DROPS/WEEK
  12. LYRICA [Concomitant]
     Active Substance: PREGABALIN
     Dosage: FREQ:24 H; 25 MG; 2 TABLETS/DAY
     Route: 048
  13. LANSOPRAZOLE [Concomitant]
     Active Substance: LANSOPRAZOLE
     Dosage: 30 MG; 1 TABLET/DAY
     Route: 048
  14. SERTRALINE [Concomitant]
     Active Substance: SERTRALINE HYDROCHLORIDE
     Dosage: FREQ:24 H; 50 MG; TABLET/DAY

REACTIONS (4)
  - Neurotoxicity [Not Recovered/Not Resolved]
  - Abdominal pain [Recovered/Resolved]
  - Nausea [Not Recovered/Not Resolved]
  - Mucosal inflammation [Recovered/Resolved]

NARRATIVE: CASE EVENT DATE: 20221201
